FAERS Safety Report 16004740 (Version 1)
Quarter: 2019Q1

REPORT INFORMATION
  Report Type: Report from Study
  Country: RO (occurrence: RO)
  Receive Date: 20190226
  Receipt Date: 20190226
  Transmission Date: 20190418
  Serious: Yes (Death)
  Sender: FDA-Public Use
  Company Number: RO-ROCHE-2270061

PATIENT
  Age: 61 Year
  Sex: Male
  Weight: 94 kg

DRUGS (1)
  1. MABTHERA [Suspect]
     Active Substance: RITUXIMAB
     Indication: LYMPHOCYTIC LEUKAEMIA
     Route: 042

REACTIONS (3)
  - Death [Fatal]
  - Pain in extremity [Unknown]
  - Disease progression [Unknown]

NARRATIVE: CASE EVENT DATE: 20181205
